FAERS Safety Report 9682240 (Version 2)
Quarter: 2013Q4

REPORT INFORMATION
  Report Type: Report from Study
  Country: US (occurrence: US)
  Receive Date: 20131112
  Receipt Date: 20131126
  Transmission Date: 20140711
  Serious: Yes (Death)
  Sender: FDA-Public Use
  Company Number: US-ROCHE-1299872

PATIENT
  Age: 70 Year
  Sex: Female
  Weight: 58.8 kg

DRUGS (2)
  1. XELODA [Suspect]
     Indication: BREAST CANCER METASTATIC
     Dosage: 2 WK ON 1 WK OFF
     Route: 048
     Dates: start: 20130408, end: 20130524
  2. ZOLEDRONIC ACID [Concomitant]
     Indication: METASTASES TO BONE
     Route: 042
     Dates: start: 20120827, end: 20130624

REACTIONS (2)
  - Hepatic failure [Fatal]
  - Disease progression [Fatal]
